FAERS Safety Report 8477139-7 (Version None)
Quarter: 2012Q2

REPORT INFORMATION
  Report Type: 
  Country: None (occurrence: None)
  Receive Date: 20120629
  Receipt Date: 20120618
  Transmission Date: 20120825
  Serious: No
  Sender: FDA-Public Use
  Company Number: US-PFIZER INC-2012131671

PATIENT
  Sex: Female
  Weight: 68.027 kg

DRUGS (11)
  1. PROTONIX [Suspect]
     Indication: GASTROOESOPHAGEAL REFLUX DISEASE
     Dosage: 40 MG, 1X/DAY
     Dates: start: 20070101
  2. ADVAIR DISKUS 100/50 [Concomitant]
     Indication: ASTHMA
     Dosage: 500/50 MG, UNK
     Dates: start: 20040101
  3. FUZEON [Concomitant]
     Dosage: UNK
  4. THORAZINE [Concomitant]
     Indication: BIPOLAR DISORDER
     Dosage: 50 MG, DAILY AT BED TIME
  5. PROTONIX [Suspect]
     Dosage: 40 MG, DAILY
     Dates: start: 20120601, end: 20120601
  6. MOTRIN [Suspect]
     Dosage: UNK
     Dates: start: 20120601
  7. SYNTHROID [Concomitant]
     Dosage: UNK
  8. LITHIUM [Concomitant]
     Dosage: UNK
  9. LAMICTAL [Concomitant]
     Indication: BIPOLAR DISORDER
     Dosage: 100 MG, UNK
     Route: 048
  10. LORAZEPAM [Concomitant]
     Indication: BIPOLAR DISORDER
     Dosage: 0.5 MG, DAILY AT BED TIME
  11. COMBIVENT [Concomitant]
     Indication: ASTHMA
     Dosage: UNK
     Dates: start: 20040101

REACTIONS (3)
  - CHEST DISCOMFORT [None]
  - DRUG INEFFECTIVE [None]
  - CHEST PAIN [None]
